FAERS Safety Report 20194105 (Version 1)
Quarter: 2021Q4

REPORT INFORMATION
  Report Type: Spontaneous
  Country: US (occurrence: US)
  Receive Date: 20211216
  Receipt Date: 20211216
  Transmission Date: 20220303
  Serious: No
  Sender: FDA-Public Use
  Company Number: US-SA-SAC20211213001106

PATIENT
  Age: 59 Year
  Sex: Female

DRUGS (10)
  1. DUPIXENT [Suspect]
     Active Substance: DUPILUMAB
     Indication: Dermatitis atopic
     Dosage: 300 MG, QOW
     Route: 058
     Dates: start: 20211021
  2. DOXEPIN [Concomitant]
     Active Substance: DOXEPIN
  3. DULOXETINE [Concomitant]
     Active Substance: DULOXETINE
  4. GABAPENTIN [Concomitant]
     Active Substance: GABAPENTIN
  5. LORAZEPAM [Concomitant]
     Active Substance: LORAZEPAM
  6. OZEMPIC [Concomitant]
     Active Substance: SEMAGLUTIDE
  7. PRAVASTATIN [Concomitant]
     Active Substance: PRAVASTATIN
  8. RAMIPRIL [Concomitant]
     Active Substance: RAMIPRIL
  9. TEMAZEPAM [Concomitant]
     Active Substance: TEMAZEPAM
  10. TRAMADOL [Concomitant]
     Active Substance: TRAMADOL

REACTIONS (1)
  - Eye pruritus [Unknown]

NARRATIVE: CASE EVENT DATE: 20211101
